FAERS Safety Report 8870993 (Version 1)
Quarter: 2012Q4

REPORT INFORMATION
  Report Type: Spontaneous
  Country: US (occurrence: None)
  Receive Date: 20121026
  Receipt Date: 20121026
  Transmission Date: 20130627
  Serious: Yes (Disabling)
  Sender: FDA-Public Use
  Company Number: None

PATIENT
  Age: 33 Year
  Sex: Female
  Weight: 58.97 kg

DRUGS (2)
  1. LARIAM [Suspect]
     Indication: MALARIA PROPHYLAXIS
     Dosage: 250 mg tablet 1 / week
     Dates: start: 19910215, end: 19910415
  2. LARIAM [Suspect]
     Dosage: 250mg tablet 1/ week
     Dates: start: 19961218, end: 19961224

REACTIONS (23)
  - Dizziness [None]
  - Vertigo [None]
  - Motion sickness [None]
  - Balance disorder [None]
  - Panic attack [None]
  - Nausea [None]
  - Anxiety [None]
  - Nightmare [None]
  - Insomnia [None]
  - Anxiety [None]
  - Tremor [None]
  - Chills [None]
  - Weight decreased [None]
  - Depression [None]
  - Phobia [None]
  - Toxicity to various agents [None]
  - Brain injury [None]
  - Road traffic accident [None]
  - Neurotoxicity [None]
  - Tinnitus [None]
  - Hyperacusis [None]
  - Cognitive disorder [None]
  - Aphasia [None]
